FAERS Safety Report 7310992-9 (Version None)
Quarter: 2011Q1

REPORT INFORMATION
  Report Type: 
  Country: None (occurrence: None)
  Receive Date: 20110210
  Receipt Date: 20110128
  Transmission Date: 20110831
  Serious: Yes (Hospitalization)
  Sender: FDA-Public Use
  Company Number: UTC-004937

PATIENT
  Sex: Female

DRUGS (3)
  1. REMODULIN [Suspect]
     Indication: PULMONARY HYPERTENSION
     Dosage: 40.32 UG/KG (0.028 UG/KG, 1 IN 1 MIN), INTRAVENOUS
     Route: 042
     Dates: start: 20050701
  2. VIAGRA [Concomitant]
  3. LASIX [Concomitant]

REACTIONS (6)
  - PSEUDOMONAL BACTERAEMIA [None]
  - HYPOTENSION [None]
  - RIGHT VENTRICULAR FAILURE [None]
  - MENTAL STATUS CHANGES [None]
  - RENAL FAILURE ACUTE [None]
  - HEPATITIS [None]
